FAERS Safety Report 16285825 (Version 1)
Quarter: 2019Q2

REPORT INFORMATION
  Report Type: Spontaneous
  Country: US (occurrence: US)
  Receive Date: 20190506
  Receipt Date: 20190506
  Transmission Date: 20190711
  Serious: Yes (Other)
  Sender: FDA-Public Use
  Company Number: None

PATIENT
  Sex: Female
  Weight: 60.8 kg

DRUGS (9)
  1. MELPHALAN. [Suspect]
     Active Substance: MELPHALAN
     Indication: PLASMA CELL MYELOMA
     Dosage: ?          OTHER FREQUENCY:QD X4 DAYS Q4W;?
     Route: 048
     Dates: start: 20180719
  2. MECLIZINE [Concomitant]
     Active Substance: MECLIZINE HYDROCHLORIDE
  3. METOPROLOL. [Concomitant]
     Active Substance: METOPROLOL
  4. TRAMADOL. [Concomitant]
     Active Substance: TRAMADOL
  5. HYDROCHLOROTHIAZIDE. [Concomitant]
     Active Substance: HYDROCHLOROTHIAZIDE
  6. RANITIDINE. [Concomitant]
     Active Substance: RANITIDINE
  7. ASPIRIN. [Concomitant]
     Active Substance: ASPIRIN
  8. DEXAMETHASONE. [Concomitant]
     Active Substance: DEXAMETHASONE
  9. POMALYST 2MG DAILY [Concomitant]

REACTIONS (4)
  - Therapy cessation [None]
  - Haemoglobin decreased [None]
  - Dizziness [None]
  - Fatigue [None]
